FAERS Safety Report 22310382 (Version 2)
Quarter: 2024Q1

REPORT INFORMATION
  Report Type: Spontaneous
  Country: CA (occurrence: CA)
  Receive Date: 20230511
  Receipt Date: 20240327
  Transmission Date: 20240409
  Serious: Yes (Other)
  Sender: FDA-Public Use
  Company Number: CA-APIL-2313377US

PATIENT
  Age: 40 Year
  Weight: 119 kg

DRUGS (15)
  1. ACITRETIN [Suspect]
     Active Substance: ACITRETIN
     Indication: Product used for unknown indication
     Dosage: DAILY DOSE: 25.0 MG, FORM: UNKNOWN
     Route: 048
     Dates: end: 20200828
  2. CERTOLIZUMAB [Concomitant]
     Active Substance: CERTOLIZUMAB
     Indication: Product used for unknown indication
     Dosage: DOSE DESC: UNK
     Route: 058
     Dates: start: 20191211
  3. NAPROXEN [Concomitant]
     Active Substance: NAPROXEN
     Indication: Product used for unknown indication
     Dosage: DOSE DESC: UNK
     Dates: start: 2017
  4. LOSEC [Concomitant]
     Active Substance: OMEPRAZOLE
     Indication: Product used for unknown indication
     Dosage: UNK
     Dates: start: 2018
  5. MOMETASONE Furote [Concomitant]
     Indication: Product used for unknown indication
     Route: 065
  6. BETAMETHASONE DIPROPIONATE\CALCIPOTRIENE MONOHYDRATE [Concomitant]
     Active Substance: BETAMETHASONE DIPROPIONATE\CALCIPOTRIENE MONOHYDRATE
     Indication: Product used for unknown indication
     Dosage: DOSE DESC: UNK
  7. LYDERM [Concomitant]
     Indication: Product used for unknown indication
     Dosage: UNK
  8. HUMIRA [Suspect]
     Active Substance: ADALIMUMAB
     Indication: Product used for unknown indication
     Route: 058
     Dates: start: 2017, end: 2018
  9. STELARA [Suspect]
     Active Substance: USTEKINUMAB
     Indication: Product used for unknown indication
     Route: 065
     Dates: start: 201906, end: 201912
  10. MYCOPHENOLIC ACID [Suspect]
     Active Substance: MYCOPHENOLIC ACID
     Indication: Product used for unknown indication
     Route: 065
  11. CIMZIA [Suspect]
     Active Substance: CERTOLIZUMAB PEGOL
     Indication: Product used for unknown indication
     Route: 065
  12. MYFORTIC [Suspect]
     Active Substance: MYCOPHENOLATE SODIUM
     Indication: Product used for unknown indication
     Dosage: DAILY DOSE: 1440.0 MG
     Route: 065
  13. MYCOPHENOLIC ACID [Suspect]
     Active Substance: MYCOPHENOLIC ACID
     Indication: Product used for unknown indication
     Route: 065
  14. LEFLUNOMIDE [Suspect]
     Active Substance: LEFLUNOMIDE
     Indication: Product used for unknown indication
     Dosage: REPORTED TERM : LEFLUNOMIDE GA
     Route: 065
  15. METHOTREXATE SODIUM [Suspect]
     Active Substance: METHOTREXATE SODIUM
     Indication: Psoriasis
     Route: 065
     Dates: start: 2017, end: 2019

REACTIONS (16)
  - Crohn^s disease [Unknown]
  - Arthralgia [Unknown]
  - Diarrhoea [Unknown]
  - Dry skin [Unknown]
  - Psoriasis [Unknown]
  - Drug ineffective [Unknown]
  - Nausea [Unknown]
  - Fatigue [Unknown]
  - Hidradenitis [Unknown]
  - Irritable bowel syndrome [Unknown]
  - Non-alcoholic fatty liver [Unknown]
  - Arthritis [Unknown]
  - Asthma [Unknown]
  - Migraine [Unknown]
  - Abdominal discomfort [Unknown]
  - Drug ineffective [Unknown]
